FAERS Safety Report 23207410 (Version 1)
Quarter: 2023Q4

REPORT INFORMATION
  Report Type: Spontaneous
  Country: US (occurrence: US)
  Receive Date: 20231120
  Receipt Date: 20231120
  Transmission Date: 20240110
  Serious: Yes (Life-Threatening, Hospitalization, Other)
  Sender: FDA-Public Use
  Company Number: US-BRACCO-2023US04065

PATIENT
  Age: 64 Year
  Sex: Female

DRUGS (15)
  1. LUMASON [Suspect]
     Active Substance: SULFUR HEXAFLUORIDE
     Indication: Echocardiogram
     Dosage: 2 ML, SINGLE
     Route: 042
     Dates: start: 20230815, end: 20230815
  2. LUMASON [Suspect]
     Active Substance: SULFUR HEXAFLUORIDE
     Indication: Echocardiogram
     Dosage: 2 ML, SINGLE
     Route: 042
     Dates: start: 20230815, end: 20230815
  3. LUMASON [Suspect]
     Active Substance: SULFUR HEXAFLUORIDE
     Indication: Echocardiogram
     Dosage: 2 ML, SINGLE
     Route: 042
     Dates: start: 20230815, end: 20230815
  4. ALBUTEROL SULFATE [Concomitant]
     Active Substance: ALBUTEROL SULFATE
  5. ASPIRIN [Concomitant]
     Active Substance: ASPIRIN
  6. ATORVASTATIN [Concomitant]
     Active Substance: ATORVASTATIN
  7. CALCIUM [Concomitant]
     Active Substance: CALCIUM
  8. VITAMIN D NOS [Concomitant]
     Active Substance: VITAMIN D NOS
  9. CITALOPRAM [Concomitant]
     Active Substance: CITALOPRAM HYDROBROMIDE
  10. CLOBETASOL [Concomitant]
     Active Substance: CLOBETASOL
     Route: 061
  11. EZETIMIBE [Concomitant]
     Active Substance: EZETIMIBE
  12. FUROSEMIDE [Concomitant]
     Active Substance: FUROSEMIDE
  13. LORAZEPAM [Concomitant]
     Active Substance: LORAZEPAM
  14. LOSARTAN [Concomitant]
     Active Substance: LOSARTAN
  15. PREDNISONE [Concomitant]
     Active Substance: PREDNISONE

REACTIONS (1)
  - Anaphylactic reaction [Recovered/Resolved]

NARRATIVE: CASE EVENT DATE: 20230815
